FAERS Safety Report 5615421-9 (Version None)
Quarter: 2008Q1

REPORT INFORMATION
  Report Type: 
  Country: None (occurrence: None)
  Receive Date: 20080131
  Receipt Date: 20080121
  Transmission Date: 20080703
  Serious: Yes (Other)
  Sender: FDA-Public Use
  Company Number: GXKR2008GB01016

PATIENT
  Age: 59 Year
  Sex: Male
  Weight: 75.8 kg

DRUGS (6)
  1. SIMVASTATIN [Suspect]
     Indication: HYPERCHOLESTEROLAEMIA
     Dosage: 1 DF, QD, ORAL
     Route: 048
     Dates: start: 20060103, end: 20080110
  2. BENDROFLUMETHIAZIDE (BENDROFLUMETHIAZIDE) [Concomitant]
  3. DOCOSAHEXANOIC ACID (DOCOSAHEXANOIC ACID) [Concomitant]
  4. EICOSAPENTAENOIC ACID (EICOSAPENTAENOIC ACID) [Concomitant]
  5. EZETIMIBE [Concomitant]
  6. LEVOTHYROXINE SODIUM [Concomitant]

REACTIONS (2)
  - AGGRESSION [None]
  - DEPRESSION [None]
